FAERS Safety Report 6064338-7 (Version None)
Quarter: 2009Q1

REPORT INFORMATION
  Report Type: 
  Country: None (occurrence: None)
  Receive Date: 20090203
  Receipt Date: 20090203
  Transmission Date: 20090719
  Serious: Yes (Hospitalization)
  Sender: FDA-Public Use
  Company Number: None

PATIENT
  Sex: Female
  Weight: 108.2 kg

DRUGS (1)
  1. MELPHALAN [Suspect]
     Dosage: 282MG

REACTIONS (8)
  - CENTRAL LINE INFECTION [None]
  - DIALYSIS [None]
  - DYSPEPSIA [None]
  - FEBRILE NEUTROPENIA [None]
  - PANCYTOPENIA [None]
  - RENAL FAILURE ACUTE [None]
  - SEPSIS [None]
  - SEPTIC SHOCK [None]
